FAERS Safety Report 21185631 (Version 2)
Quarter: 2022Q3

REPORT INFORMATION
  Report Type: Spontaneous
  Country: US (occurrence: US)
  Receive Date: 20220808
  Receipt Date: 20220911
  Transmission Date: 20221027
  Serious: No
  Sender: FDA-Public Use
  Company Number: US-SA-SAC20220801001025

PATIENT
  Age: 62 Year
  Sex: Female
  Weight: 89.81 kg

DRUGS (11)
  1. DUPIXENT [Suspect]
     Active Substance: DUPILUMAB
     Indication: Dermatitis atopic
     Dosage: FIRST DOSE
     Route: 058
     Dates: start: 20220705
  2. DUPIXENT [Suspect]
     Active Substance: DUPILUMAB
     Dosage: 300 MG QOW
     Route: 058
  3. OLMESARTAN [Concomitant]
     Active Substance: OLMESARTAN
  4. IBUPROFEN [Concomitant]
     Active Substance: IBUPROFEN
  5. CLOBETASOL PROPIONATE [Concomitant]
     Active Substance: CLOBETASOL PROPIONATE
  6. CICLOPIROX [Concomitant]
     Active Substance: CICLOPIROX
  7. ECONAZOLE NITRATE [Concomitant]
     Active Substance: ECONAZOLE NITRATE
  8. METHYLPREDNISOLONE [Concomitant]
     Active Substance: METHYLPREDNISOLONE
  9. TACROLIMUS [Concomitant]
     Active Substance: TACROLIMUS
  10. HYDROXYZINE [Concomitant]
     Active Substance: HYDROXYZINE HYDROCHLORIDE
  11. AMLODIPINE [Concomitant]
     Active Substance: AMLODIPINE BESYLATE

REACTIONS (9)
  - Eczema asteatotic [Unknown]
  - Pruritus [Unknown]
  - Pain [Recovered/Resolved]
  - Pyrexia [Unknown]
  - Peripheral swelling [Recovered/Resolved]
  - Arthritis [Not Recovered/Not Resolved]
  - Hypersensitivity [Not Recovered/Not Resolved]
  - Arthralgia [Unknown]
  - Dermatitis atopic [Not Recovered/Not Resolved]

NARRATIVE: CASE EVENT DATE: 20220701
